FAERS Safety Report 5887715-3 (Version None)
Quarter: 2008Q3

REPORT INFORMATION
  Report Type: 
  Country: None (occurrence: None)
  Receive Date: 20080916
  Receipt Date: 20080916
  Transmission Date: 20090109
  Serious: Yes (Life-Threatening, Hospitalization)
  Sender: FDA-Public Use
  Company Number: None

PATIENT
  Age: 47 Year
  Sex: Female
  Weight: 96.2 kg

DRUGS (2)
  1. HYDROMORPHONE HCL [Suspect]
     Indication: PAIN
     Dosage: 1-2MG Q2H IV
     Route: 042
     Dates: start: 20080513
  2. ZOFRAN [Concomitant]

REACTIONS (3)
  - CARDIO-RESPIRATORY ARREST [None]
  - SKIN DISCOLOURATION [None]
  - UNRESPONSIVE TO STIMULI [None]
